FAERS Safety Report 20169254 (Version 1)
Quarter: 2021Q4

REPORT INFORMATION
  Report Type: Spontaneous
  Country: US (occurrence: US)
  Receive Date: 20211210
  Receipt Date: 20211210
  Transmission Date: 20220303
  Serious: Yes (Hospitalization)
  Sender: FDA-Public Use
  Company Number: US-BRISTOL-MYERS SQUIBB COMPANY-BMS-2021-133705

PATIENT
  Age: 91 Year
  Sex: Female
  Weight: 86.168 kg

DRUGS (12)
  1. ELIQUIS [Suspect]
     Active Substance: APIXABAN
     Indication: Product used for unknown indication
     Dosage: 2.5 MILLIGRAM DAILY
     Route: 048
     Dates: start: 20211124
  2. LENALIDOMIDE [Suspect]
     Active Substance: LENALIDOMIDE
     Indication: Plasma cell myeloma
     Dosage: 5 MILLIGRAM, 1 X 21 DAYS
     Route: 048
     Dates: start: 20211116, end: 20211202
  3. FUROSEMIDE [Concomitant]
     Active Substance: FUROSEMIDE
     Indication: Product used for unknown indication
     Dosage: 40 MILLIGRAM, QD
     Route: 048
     Dates: start: 20211124
  4. ASPIRIN [Concomitant]
     Active Substance: ASPIRIN
     Indication: Product used for unknown indication
     Dosage: 81 MILLIGRAM
     Route: 048
     Dates: start: 20211124
  5. MAGNESIUM GLUCONATE [Concomitant]
     Active Substance: MAGNESIUM GLUCONATE
     Indication: Product used for unknown indication
     Dosage: 250 MILLIGRAM, QD
     Route: 048
     Dates: start: 20211124
  6. METHOTREXATE SODIUM [Concomitant]
     Active Substance: METHOTREXATE SODIUM
     Indication: Product used for unknown indication
     Dosage: 2.5 MG EVERY OTHER WEEK
     Route: 048
     Dates: start: 20211124
  7. FOLIC ACID [Concomitant]
     Active Substance: FOLIC ACID
     Indication: Product used for unknown indication
     Dosage: 800 MICROGRAM, QD
     Route: 048
     Dates: start: 20211124
  8. ERGOCALCIFEROL [Concomitant]
     Active Substance: ERGOCALCIFEROL
     Indication: Product used for unknown indication
     Dosage: 50 MICROGRAM, QD
     Route: 048
     Dates: start: 20211124
  9. POTASSIUM CHLORIDE [Concomitant]
     Active Substance: POTASSIUM CHLORIDE
     Indication: Product used for unknown indication
     Dosage: 20 MILLIEQUIVALENT, QD
     Route: 048
     Dates: start: 20211124
  10. MINERALS\VITAMINS [Concomitant]
     Active Substance: MINERALS\VITAMINS
     Indication: Product used for unknown indication
     Dosage: UNK, QD
     Route: 048
     Dates: start: 20211124
  11. ALLOPURINOL [Concomitant]
     Active Substance: ALLOPURINOL
     Indication: Product used for unknown indication
     Dosage: 100 MILLIGRAM
     Route: 048
     Dates: start: 20211124
  12. DEXAMETHASONE [Concomitant]
     Active Substance: DEXAMETHASONE
     Indication: Product used for unknown indication
     Dosage: 4 MILLIGRAM
     Route: 048

REACTIONS (2)
  - Swollen tongue [Recovering/Resolving]
  - Dyspnoea [Recovering/Resolving]
